FAERS Safety Report 25552322 (Version 2)
Quarter: 2025Q3

REPORT INFORMATION
  Report Type: Spontaneous
  Country: JP (occurrence: JP)
  Receive Date: 20250715
  Receipt Date: 20250912
  Transmission Date: 20251020
  Serious: Yes (Hospitalization, Other)
  Sender: ALEXION PHARMACEUTICALS
  Company Number: JP-AstraZeneca-CH-00906008A

PATIENT
  Age: 66 Year
  Sex: Male
  Weight: 69 kg

DRUGS (7)
  1. IMFINZI [Suspect]
     Active Substance: DURVALUMAB
     Indication: Bile duct cancer
     Route: 065
     Dates: start: 20250409, end: 20250611
  2. ESOMEPRAZOLE [Concomitant]
     Active Substance: ESOMEPRAZOLE
  3. GEMCITABINE [Concomitant]
     Active Substance: GEMCITABINE
  4. OLMESARTAN [Concomitant]
     Active Substance: OLMESARTAN
  5. AZELNIDIPINE\OLMESARTAN MEDOXOMIL [Concomitant]
     Active Substance: AZELNIDIPINE\OLMESARTAN MEDOXOMIL
  6. CARVEDILOL [Concomitant]
     Active Substance: CARVEDILOL
  7. CISPLATIN [Suspect]
     Active Substance: CISPLATIN
     Indication: Bile duct cancer
     Route: 065
     Dates: start: 20250409, end: 20250611

REACTIONS (6)
  - Immune-mediated enterocolitis [Recovering/Resolving]
  - Acute kidney injury [Not Recovered/Not Resolved]
  - Prerenal failure [Unknown]
  - Cholangitis [Unknown]
  - Disseminated intravascular coagulation [Unknown]
  - Tubulointerstitial nephritis [Unknown]

NARRATIVE: CASE EVENT DATE: 20250703
